FAERS Safety Report 6303354-4 (Version None)
Quarter: 2009Q3

REPORT INFORMATION
  Report Type: 
  Country: None (occurrence: None)
  Receive Date: 20090810
  Receipt Date: 20090422
  Transmission Date: 20100115
  Serious: No
  Sender: FDA-Public Use
  Company Number: US-TYCO HEALTHCARE/MALLINCKRODT-T200900919

PATIENT
  Age: 45 Year
  Sex: Female

DRUGS (1)
  1. PAMELOR [Suspect]
     Indication: ABDOMINAL DISCOMFORT
     Dosage: 20 MG, DAILY
     Route: 048
     Dates: start: 20090201

REACTIONS (2)
  - OFF LABEL USE [None]
  - TACHYCARDIA [None]
